FAERS Safety Report 11721323 (Version 2)
Quarter: 2017Q3

REPORT INFORMATION
  Report Type: Report from Study
  Country: None (occurrence: US)
  Receive Date: 20151111
  Receipt Date: 20170906
  Transmission Date: 20171127
  Serious: Yes (Death, Hospitalization, Other)
  Sender: FDA-Public Use
  Company Number: US-ABBVIE-15K-163-1494406-00

PATIENT
  Age: 54 Year
  Sex: Male
  Weight: 84.9 kg

DRUGS (1)
  1. HUMIRA [Suspect]
     Active Substance: ADALIMUMAB
     Indication: COLITIS ULCERATIVE
     Route: 058
     Dates: start: 201503, end: 201509

REACTIONS (3)
  - Glioblastoma [Fatal]
  - Post procedural complication [Recovering/Resolving]
  - Vasogenic cerebral oedema [Recovering/Resolving]

NARRATIVE: CASE EVENT DATE: 201509
